FAERS Safety Report 8903313 (Version 1)
Quarter: 2012Q4

REPORT INFORMATION
  Report Type: 
  Country: ES (occurrence: ES)
  Receive Date: 20121113
  Receipt Date: 20121113
  Transmission Date: 20130627
  Serious: Yes (Life-Threatening, Hospitalization)
  Sender: FDA-Public Use
  Company Number: ES-UCBSA-070678

PATIENT
  Age: 88 Year
  Sex: Female

DRUGS (2)
  1. ISOSORBIDE MONONITRATE [Suspect]
     Indication: CHEST PAIN
     Route: 048
     Dates: start: 20120616, end: 20120621
  2. NITRODERM [Suspect]
     Indication: CHEST PAIN
     Route: 058
     Dates: start: 20120616, end: 20120621

REACTIONS (3)
  - Neutropenia [Recovered/Resolved]
  - Thrombocytopenia [Recovered/Resolved]
  - Dermatitis exfoliative [Recovered/Resolved]
